FAERS Safety Report 6384378-8 (Version None)
Quarter: 2009Q4

REPORT INFORMATION
  Report Type: 
  Country: None (occurrence: None)
  Receive Date: 20091001
  Receipt Date: 20090923
  Transmission Date: 20100525
  Serious: Yes (Death, Life-Threatening, Hospitalization)
  Sender: FDA-Public Use
  Company Number: HU-JNJFOC-20090901826

PATIENT
  Age: 39 Year

DRUGS (4)
  1. REMICADE [Suspect]
     Route: 042
     Dates: end: 20090731
  2. REMICADE [Suspect]
     Route: 042
     Dates: end: 20090731
  3. REMICADE [Suspect]
     Indication: CROHN'S DISEASE
     Route: 042
     Dates: end: 20090731
  4. IMURAN [Concomitant]
     Indication: CROHN'S DISEASE

REACTIONS (3)
  - PANCREATIC NECROSIS [None]
  - PERITONITIS [None]
  - PNEUMONIA [None]
